FAERS Safety Report 10007948 (Version 2)
Quarter: 2014Q1

REPORT INFORMATION
  Report Type: Spontaneous
  Country: JP (occurrence: JP)
  Receive Date: 20140313
  Receipt Date: 20140313
  Transmission Date: 20141002
  Serious: Yes (Life-Threatening)
  Sender: FDA-Public Use
  Company Number: JP-JNJFOC-20140209147

PATIENT
  Age: 70 Year
  Sex: Female

DRUGS (11)
  1. FENTANYL CITRATE [Suspect]
     Indication: PAIN
     Route: 042
     Dates: start: 20131202, end: 20131202
  2. FENTANYL CITRATE [Suspect]
     Indication: ANALGESIC THERAPY
     Route: 042
     Dates: start: 20131202, end: 20131202
  3. CRAVIT [Suspect]
     Indication: PYELONEPHRITIS CHRONIC
     Route: 048
     Dates: start: 20130926
  4. CRAVIT [Suspect]
     Indication: NEPHROLITHIASIS
     Route: 048
     Dates: start: 20130926
  5. ULTIVA [Suspect]
     Indication: ANALGESIC THERAPY
     Route: 042
     Dates: start: 20131202, end: 20131202
  6. SEVOFLURANE [Suspect]
     Indication: MAINTENANCE OF ANAESTHESIA
     Route: 055
     Dates: start: 20131202, end: 20131202
  7. SEVOFLURANE [Suspect]
     Indication: INDUCTION OF ANAESTHESIA
     Route: 055
     Dates: start: 20131202, end: 20131202
  8. MIDAZOLAM [Suspect]
     Indication: INDUCTION OF ANAESTHESIA
     Route: 042
     Dates: start: 20131202, end: 20131202
  9. ROCURONIUM BROMIDE [Suspect]
     Indication: HYPOTONIA
     Route: 042
     Dates: start: 20131202, end: 20131202
  10. AMIKACIN SULFATE [Suspect]
     Indication: INFECTION PROPHYLAXIS
     Route: 042
     Dates: start: 20131202, end: 20131202
  11. PIPERACILLIN SODIUM [Suspect]
     Indication: INFECTION PROPHYLAXIS
     Route: 042
     Dates: start: 20131201, end: 20131201

REACTIONS (3)
  - Anaphylactic shock [Recovered/Resolved]
  - Platelet count decreased [Unknown]
  - White blood cell count increased [Unknown]
